FAERS Safety Report 8791453 (Version 1)
Quarter: 2012Q4

REPORT INFORMATION
  Report Type: Spontaneous
  Country: US (occurrence: None)
  Receive Date: 20120914
  Receipt Date: 20120914
  Transmission Date: 20130627
  Serious: Yes (Hospitalization, Other)
  Sender: FDA-Public Use
  Company Number: None

PATIENT
  Age: 88 Year
  Sex: Female
  Weight: 53.07 kg

DRUGS (1)
  1. CLONAZEPAM [Suspect]
     Dates: start: 2004, end: 2012

REACTIONS (9)
  - Panic attack [None]
  - Tremor [None]
  - Nightmare [None]
  - Irritability [None]
  - Amnesia [None]
  - Suicidal ideation [None]
  - Asthenia [None]
  - Fall [None]
  - Impaired reasoning [None]
